FAERS Safety Report 25229597 (Version 3)
Quarter: 2025Q3

REPORT INFORMATION
  Report Type: Report from Study
  Country: US (occurrence: US)
  Receive Date: 20250423
  Receipt Date: 20250729
  Transmission Date: 20251021
  Serious: Yes (Hospitalization, Other)
  Sender: CSL BEHRING
  Company Number: US-BEH-2024185284

PATIENT
  Age: 67 Year
  Sex: Female
  Weight: 68 kg

DRUGS (4)
  1. BERINERT [Suspect]
     Active Substance: HUMAN C1-ESTERASE INHIBITOR
     Indication: Hereditary angioedema
     Route: 058
  2. BERINERT [Suspect]
     Active Substance: HUMAN C1-ESTERASE INHIBITOR
     Indication: Prophylaxis
     Dosage: 4000 IU, BIW
     Route: 058
     Dates: start: 202212
  3. BERINERT [Suspect]
     Active Substance: HUMAN C1-ESTERASE INHIBITOR
     Dosage: 4000 IU/KG, BIW
     Route: 058
  4. ICATIBANT ACETATE [Concomitant]
     Active Substance: ICATIBANT ACETATE

REACTIONS (17)
  - Dizziness [Unknown]
  - Red blood cell count decreased [Unknown]
  - Infection [Unknown]
  - Seizure [Unknown]
  - Therapy change [Unknown]
  - Dysuria [Unknown]
  - Tremor [Unknown]
  - Immune system disorder [Unknown]
  - Asthenia [Unknown]
  - Myalgia [Unknown]
  - Palpitations [Unknown]
  - Injection site bruising [Unknown]
  - Injection site pruritus [Unknown]
  - Pyrexia [Unknown]
  - Toothache [Unknown]
  - Feeding disorder [Unknown]
  - Red blood cell count decreased [Unknown]
